FAERS Safety Report 5249188-3 (Version None)
Quarter: 2007Q1

REPORT INFORMATION
  Report Type: 
  Country: None (occurrence: None)
  Receive Date: 20070223
  Receipt Date: 20070212
  Transmission Date: 20070707
  Serious: Yes (Hospitalization)
  Sender: FDA-Public Use
  Company Number: 2007SP002960

PATIENT
  Sex: Female

DRUGS (2)
  1. TEMODAL [Suspect]
     Dosage: PO
     Route: 048
  2. RADIOTHERAPY (THERAPEUTIC RADIOPHARMACEUTICALS) [Suspect]
     Indication: GLIOBLASTOMA

REACTIONS (1)
  - HEPATIC FAILURE [None]
